FAERS Safety Report 11585820 (Version 1)
Quarter: 2015Q3

REPORT INFORMATION
  Report Type: Spontaneous
  Country: US (occurrence: US)
  Receive Date: 20150916
  Receipt Date: 20150916
  Transmission Date: 20151125
  Serious: No
  Sender: FDA-Public Use
  Company Number: US-ELI_LILLY_AND_COMPANY-US200804001128

PATIENT
  Age: 81 Year
  Sex: Female

DRUGS (3)
  1. VITAMIN D [Concomitant]
     Active Substance: CHOLECALCIFEROL
  2. FORTEO [Suspect]
     Active Substance: TERIPARATIDE
     Indication: OSTEOPOROSIS
     Dosage: UNK, UNK
     Route: 058
     Dates: start: 20070908
  3. CALCIUM [Concomitant]
     Active Substance: CALCIUM
     Dates: end: 200803

REACTIONS (2)
  - Tooth disorder [Recovering/Resolving]
  - Blood calcium increased [Recovered/Resolved]

NARRATIVE: CASE EVENT DATE: 200803
